FAERS Safety Report 15034227 (Version 1)
Quarter: 2018Q2

REPORT INFORMATION
  Report Type: Spontaneous
  Country: IS (occurrence: IS)
  Receive Date: 20180620
  Receipt Date: 20180620
  Transmission Date: 20180711
  Serious: Yes (Other)
  Sender: FDA-Public Use
  Company Number: IS-CONCORDIA PHARMACEUTICALS INC.-E2B_00012624

PATIENT
  Age: 61 Year
  Sex: Female

DRUGS (1)
  1. PREDNISOLONE. [Suspect]
     Active Substance: PREDNISOLONE
     Indication: PNEUMONIA
     Dosage: 7 TABLETS FOR 3 DAYS, 6 TABLETS FOR 3 DAYS, 5 TABLETS FOR 3 DAYS, 4 TABLETS FOR 3 DAYS, 3 TABLETS FO
     Dates: start: 20180319, end: 20180408

REACTIONS (3)
  - Heart rate increased [Unknown]
  - Decubitus ulcer [Recovered/Resolved]
  - Vitreous detachment [Recovered/Resolved with Sequelae]

NARRATIVE: CASE EVENT DATE: 201803
